FAERS Safety Report 8065970-1 (Version None)
Quarter: 2012Q1

REPORT INFORMATION
  Report Type: 
  Country: None (occurrence: None)
  Receive Date: 20120124
  Receipt Date: 20120112
  Transmission Date: 20120608
  Serious: Yes (Other)
  Sender: FDA-Public Use
  Company Number: IE-TEVA-318795ISR

PATIENT
  Sex: Female

DRUGS (1)
  1. ACTIQ [Suspect]
     Dosage: 1800 MICROGRAM;
     Route: 048

REACTIONS (3)
  - DRUG DEPENDENCE [None]
  - DENTAL CARIES [None]
  - OSTEONECROSIS OF JAW [None]
